FAERS Safety Report 13412765 (Version 1)
Quarter: 2017Q2

REPORT INFORMATION
  Report Type: Spontaneous
  Country: US (occurrence: US)
  Receive Date: 20170406
  Receipt Date: 20170406
  Transmission Date: 20170830
  Serious: Yes (Other)
  Sender: FDA-Public Use
  Company Number: None

PATIENT
  Age: 29 Year
  Sex: Female
  Weight: 87.75 kg

DRUGS (12)
  1. MUPIROCIN. [Concomitant]
     Active Substance: MUPIROCIN
  2. MECLIZINE [Concomitant]
     Active Substance: MECLIZINE HYDROCHLORIDE
  3. XIIDRA [Suspect]
     Active Substance: LIFITEGRAST
     Indication: DRY EYE
     Route: 047
     Dates: start: 20170315, end: 20170402
  4. PHENTERMINE. [Concomitant]
     Active Substance: PHENTERMINE
  5. ALPRAZOLAM. [Concomitant]
     Active Substance: ALPRAZOLAM
  6. TRIAMCINOLONE [Concomitant]
     Active Substance: TRIAMCINOLONE
  7. GATIFLOXACIN. [Concomitant]
     Active Substance: GATIFLOXACIN
  8. PREDNISOLONE AC [Concomitant]
     Active Substance: PREDNISOLONE ACETATE
  9. AZELASTINE [Concomitant]
     Active Substance: AZELASTINE
  10. ORPHENADRINE CITRATE. [Concomitant]
     Active Substance: ORPHENADRINE CITRATE
  11. CITALOPRAM [Concomitant]
     Active Substance: CITALOPRAM HYDROBROMIDE
  12. PREDNISONE. [Concomitant]
     Active Substance: PREDNISONE

REACTIONS (4)
  - Drug hypersensitivity [None]
  - Cough [None]
  - Viral upper respiratory tract infection [None]
  - Increased upper airway secretion [None]

NARRATIVE: CASE EVENT DATE: 20170315
